FAERS Safety Report 9629524 (Version 2)
Quarter: 2013Q4

REPORT INFORMATION
  Report Type: Spontaneous
  Country: US (occurrence: US)
  Receive Date: 20131017
  Receipt Date: 20131212
  Transmission Date: 20140711
  Serious: No
  Sender: FDA-Public Use
  Company Number: US-009507513-1309USA010970

PATIENT
  Age: 17 Year
  Sex: Female
  Weight: 50.79 kg

DRUGS (1)
  1. NEXPLANON [Suspect]
     Dosage: 68 MG / ONE ROD EVERY THREE YEARS
     Route: 059
     Dates: start: 20130912

REACTIONS (2)
  - Device difficult to use [Unknown]
  - No adverse event [Unknown]
